FAERS Safety Report 10396621 (Version 2)
Quarter: 2015Q4

REPORT INFORMATION
  Report Type: Spontaneous
  Country: US (occurrence: None)
  Receive Date: 20130815
  Receipt Date: 20151111
  Transmission Date: 20160304
  Serious: Yes (Other)
  Sender: FDA-Public Use
  Company Number: ADR-2012-01644

PATIENT
  Age: 63 Year
  Sex: Female

DRUGS (1)
  1. BACLOFEN INTRATHECAL (BACLOFEN INJECTION) [Suspect]
     Active Substance: BACLOFEN
     Indication: MUSCLE SPASTICITY

REACTIONS (5)
  - Renal impairment [None]
  - Kidney infection [None]
  - Bacterial infection [None]
  - Urinary tract disorder [None]
  - Neuralgia [None]
